FAERS Safety Report 5343330-1 (Version None)
Quarter: 2007Q2

REPORT INFORMATION
  Report Type: 
  Country: None (occurrence: None)
  Receive Date: 20070502
  Receipt Date: 20060425
  Transmission Date: 20071010
  Serious: Yes (Other)
  Sender: FDA-Public Use
  Company Number: PHEH2006US05386

PATIENT
  Sex: Female

DRUGS (2)
  1. LOTREL [Suspect]
     Dosage: ORAL
     Route: 048
  2. LIPITOR [Suspect]

REACTIONS (5)
  - ANAEMIA [None]
  - ASTHENIA [None]
  - GINGIVAL DISORDER [None]
  - MYALGIA [None]
  - RENAL IMPAIRMENT [None]
